FAERS Safety Report 9049601 (Version 1)
Quarter: 2013Q1

REPORT INFORMATION
  Report Type: Spontaneous
  Country: US (occurrence: US)
  Receive Date: 20130205
  Receipt Date: 20130205
  Transmission Date: 20140127
  Serious: No
  Sender: FDA-Public Use
  Company Number: US-ROXANE LABORATORIES, INC.-2013-RO-00184RO

PATIENT
  Age: 62 Year
  Sex: Male

DRUGS (2)
  1. PREDNISONE [Suspect]
     Indication: URTICARIA
     Dates: end: 20130113
  2. PREDNISONE [Suspect]
     Indication: DERMATITIS CONTACT

REACTIONS (2)
  - Insomnia [Unknown]
  - Palpitations [Not Recovered/Not Resolved]
